FAERS Safety Report 10649552 (Version 5)
Quarter: 2025Q3

REPORT INFORMATION
  Report Type: Spontaneous
  Country: EU (occurrence: EU)
  Receive Date: 20141212
  Receipt Date: 20250916
  Transmission Date: 20251021
  Serious: Yes (Hospitalization)
  Sender: MYLAN
  Company Number: EU-PFIZER INC-2014341871

PATIENT
  Age: 77 Year
  Sex: Male
  Weight: 72.5 kg

DRUGS (24)
  1. ATORVASTATIN CALCIUM [Suspect]
     Active Substance: ATORVASTATIN CALCIUM
     Indication: Hyperlipidaemia
     Dosage: 40 MG, DAILY
     Dates: start: 20140807
  2. ATORVASTATIN CALCIUM [Suspect]
     Active Substance: ATORVASTATIN CALCIUM
     Dosage: 40 MG, DAILY
     Route: 048
     Dates: start: 20140807
  3. ATORVASTATIN CALCIUM [Suspect]
     Active Substance: ATORVASTATIN CALCIUM
     Dosage: 40 MG, DAILY
     Route: 048
     Dates: start: 20140807
  4. ATORVASTATIN CALCIUM [Suspect]
     Active Substance: ATORVASTATIN CALCIUM
     Dosage: 40 MG, DAILY
     Dates: start: 20140807
  5. CLOPIDOGREL [Suspect]
     Active Substance: CLOPIDOGREL BISULFATE
     Indication: Peripheral arterial occlusive disease
     Dosage: 75 MG, DAILY
     Dates: start: 20131219, end: 20140622
  6. CLOPIDOGREL [Suspect]
     Active Substance: CLOPIDOGREL BISULFATE
     Dosage: 75 MG, DAILY
     Route: 048
     Dates: start: 20131219, end: 20140622
  7. CLOPIDOGREL [Suspect]
     Active Substance: CLOPIDOGREL BISULFATE
     Dosage: 75 MG, DAILY
     Route: 048
     Dates: start: 20131219, end: 20140622
  8. CLOPIDOGREL [Suspect]
     Active Substance: CLOPIDOGREL BISULFATE
     Dosage: 75 MG, DAILY
     Dates: start: 20131219, end: 20140622
  9. RAMIPRIL [Suspect]
     Active Substance: RAMIPRIL
     Indication: Hypertension
     Dosage: 5 MG, DAILY
     Dates: start: 20140807
  10. RAMIPRIL [Suspect]
     Active Substance: RAMIPRIL
     Dosage: 5 MG, DAILY
     Route: 048
     Dates: start: 20140807
  11. RAMIPRIL [Suspect]
     Active Substance: RAMIPRIL
     Dosage: 5 MG, DAILY
     Route: 048
     Dates: start: 20140807
  12. RAMIPRIL [Suspect]
     Active Substance: RAMIPRIL
     Dosage: 5 MG, DAILY
     Dates: start: 20140807
  13. ASPIRIN [Suspect]
     Active Substance: ASPIRIN
     Indication: Prophylaxis
     Dosage: 75 MG, DAILY
     Dates: start: 20140807
  14. ASPIRIN [Suspect]
     Active Substance: ASPIRIN
     Dosage: 75 MG, DAILY
     Route: 048
     Dates: start: 20140807
  15. ASPIRIN [Suspect]
     Active Substance: ASPIRIN
     Dosage: 75 MG, DAILY
     Route: 048
     Dates: start: 20140807
  16. ASPIRIN [Suspect]
     Active Substance: ASPIRIN
     Dosage: 75 MG, DAILY
     Dates: start: 20140807
  17. BISOPROLOL FUMARATE [Suspect]
     Active Substance: BISOPROLOL FUMARATE
     Indication: Hypertension
     Dosage: 5 MG, DAILY
     Dates: start: 20140807
  18. BISOPROLOL FUMARATE [Suspect]
     Active Substance: BISOPROLOL FUMARATE
     Dosage: 5 MG, DAILY
     Route: 048
     Dates: start: 20140807
  19. BISOPROLOL FUMARATE [Suspect]
     Active Substance: BISOPROLOL FUMARATE
     Dosage: 5 MG, DAILY
     Route: 048
     Dates: start: 20140807
  20. BISOPROLOL FUMARATE [Suspect]
     Active Substance: BISOPROLOL FUMARATE
     Dosage: 5 MG, DAILY
     Dates: start: 20140807
  21. HEPARIN [Suspect]
     Active Substance: HEPARIN SODIUM
     Indication: Anticoagulant therapy
     Dosage: 5000 INCH(ES), DAILY
     Dates: start: 20140807, end: 20140807
  22. HEPARIN [Suspect]
     Active Substance: HEPARIN SODIUM
     Dosage: 5000 INCH(ES), DAILY
     Route: 042
     Dates: start: 20140807, end: 20140807
  23. HEPARIN [Suspect]
     Active Substance: HEPARIN SODIUM
     Dosage: 5000 INCH(ES), DAILY
     Route: 042
     Dates: start: 20140807, end: 20140807
  24. HEPARIN [Suspect]
     Active Substance: HEPARIN SODIUM
     Dosage: 5000 INCH(ES), DAILY
     Dates: start: 20140807, end: 20140807

REACTIONS (1)
  - Angina pectoris [Recovered/Resolved]

NARRATIVE: CASE EVENT DATE: 20140807
